FAERS Safety Report 4614273-3 (Version None)
Quarter: 2005Q1

REPORT INFORMATION
  Report Type: 
  Country: None (occurrence: None)
  Receive Date: 20050315
  Receipt Date: 20050228
  Transmission Date: 20050727
  Serious: Yes (Hospitalization)
  Sender: FDA-Public Use
  Company Number: F01200500345

PATIENT
  Age: 77 Year
  Sex: Female

DRUGS (3)
  1. OXALIPLATIN - SOLUTION - 218 MG [Suspect]
     Indication: COLORECTAL CANCER METASTATIC
     Dosage: 218 MG Q3W INTRAVENOUS NOS
     Route: 042
     Dates: start: 20050211, end: 20050211
  2. CAPECITABINE - TABLET - 1650 MG [Suspect]
     Dosage: 1650 MG TWICE A DAY FOR 2 WEEKS, Q3W, ORAL
     Route: 048
     Dates: start: 20050121, end: 20050204
  3. BEVACIZUMAB OR PLACEBO - SOLUTION - 487 MG [Suspect]
     Dosage: 487 MG Q3W INTRAVENOUS NOS
     Route: 042
     Dates: start: 20050211, end: 20050211

REACTIONS (9)
  - DYSARTHRIA [None]
  - ERYTHEMA [None]
  - HYPERTENSION [None]
  - INFUSION SITE REACTION [None]
  - MALAISE [None]
  - PARAESTHESIA [None]
  - THROAT TIGHTNESS [None]
  - TRANSIENT ISCHAEMIC ATTACK [None]
  - VISION BLURRED [None]
